FAERS Safety Report 5844032-5 (Version None)
Quarter: 2008Q3

REPORT INFORMATION
  Report Type: 
  Country: None (occurrence: None)
  Receive Date: 20080813
  Receipt Date: 20080804
  Transmission Date: 20090109
  Serious: Yes (Hospitalization, Other)
  Sender: FDA-Public Use
  Company Number: US-ELI_LILLY_AND_COMPANY-US200806003869

PATIENT
  Sex: Female

DRUGS (6)
  1. EVISTA [Suspect]
     Indication: OSTEOPOROSIS
     Dosage: 60 MG, UNK
     Dates: start: 20050101
  2. FORTEO [Suspect]
     Indication: OSTEOPOROSIS
     Dosage: UNK, UNK
     Dates: start: 20071117, end: 20071209
  3. FORTEO [Suspect]
     Dates: start: 20080219
  4. FOSAMAX [Concomitant]
  5. CALCIUM CARBONATE [Concomitant]
  6. CALCIUM CITRATE [Concomitant]

REACTIONS (6)
  - ARTHRALGIA [None]
  - ARTHRITIS [None]
  - FATIGUE [None]
  - HIP FRACTURE [None]
  - PAIN [None]
  - ULCER [None]
